FAERS Safety Report 11609745 (Version 1)
Quarter: 2015Q3

REPORT INFORMATION
  Report Type: Spontaneous
  Country: US (occurrence: US)
  Receive Date: 20150916
  Receipt Date: 20150916
  Transmission Date: 20151125
  Serious: No
  Sender: FDA-Public Use
  Company Number: US-ELI_LILLY_AND_COMPANY-US201309004654

PATIENT
  Sex: Female

DRUGS (1)
  1. HUMALOG [Suspect]
     Active Substance: INSULIN LISPRO
     Indication: TYPE 2 DIABETES MELLITUS

REACTIONS (7)
  - Heart rate increased [Unknown]
  - Peripheral swelling [Unknown]
  - Joint swelling [Unknown]
  - Tinnitus [Unknown]
  - Drug hypersensitivity [Unknown]
  - Swelling face [Unknown]
  - Orthopnoea [Unknown]
